FAERS Safety Report 24468609 (Version 2)
Quarter: 2024Q4

REPORT INFORMATION
  Report Type: Spontaneous
  Country: US (occurrence: US)
  Receive Date: 20241018
  Receipt Date: 20241021
  Transmission Date: 20250115
  Serious: No
  Sender: PERRIGO
  Company Number: US-PERRIGO-23US012960

PATIENT

DRUGS (2)
  1. LORATADINE [Suspect]
     Active Substance: LORATADINE
     Indication: Product used for unknown indication
     Dosage: 10 MG, SINGLE IN AM
     Route: 048
     Dates: start: 20231109, end: 20231109
  2. LORATADINE [Suspect]
     Active Substance: LORATADINE
     Indication: Insomnia
     Dosage: 10 MG, SINGLE AT HS
     Route: 048
     Dates: start: 20231108, end: 20231108

REACTIONS (1)
  - Off label use [Unknown]

NARRATIVE: CASE EVENT DATE: 20231108
